FAERS Safety Report 26038681 (Version 3)
Quarter: 2025Q4

REPORT INFORMATION
  Report Type: Report from Study
  Country: US (occurrence: None)
  Receive Date: 20251113
  Receipt Date: 20251212
  Transmission Date: 20260117
  Serious: Yes (Other)
  Sender: UCB
  Company Number: US-UCBSA-2025070814

PATIENT
  Age: 29 Year
  Weight: 86 kg

DRUGS (1)
  1. FENFLURAMINE HYDROCHLORIDE [Suspect]
     Active Substance: FENFLURAMINE HYDROCHLORIDE
     Indication: Lennox-Gastaut syndrome
     Dosage: 11.80 MILLILITER (5.9 MILLILITER (25.96 MG/KG/DAY))

REACTIONS (2)
  - Mitral valve incompetence [Not Recovered/Not Resolved]
  - Sleep disorder [Not Recovered/Not Resolved]
